FAERS Safety Report 8425566-6 (Version None)
Quarter: 2012Q2

REPORT INFORMATION
  Report Type: 
  Country: None (occurrence: None)
  Receive Date: 20120605
  Receipt Date: 20120605
  Transmission Date: 20120825
  Serious: Yes (Other)
  Sender: FDA-Public Use
  Company Number: None

PATIENT
  Age: 49 Year
  Sex: Male
  Weight: 77.1115 kg

DRUGS (2)
  1. LYRICA [Suspect]
     Indication: FIBROMYALGIA
     Dosage: 75MG 1 X DAY 1 WEEK MOUTH
     Route: 048
     Dates: start: 20120123, end: 20120201
  2. LYRICA [Suspect]
     Indication: FIBROMYALGIA
     Dosage: 150 1 X DAY 1 WEEK MOUTH
     Route: 048
     Dates: start: 20120201, end: 20120210

REACTIONS (5)
  - MANIA [None]
  - PSYCHOMOTOR HYPERACTIVITY [None]
  - INSOMNIA [None]
  - URTICARIA [None]
  - SKIN DISORDER [None]
